FAERS Safety Report 12647370 (Version 1)
Quarter: 2016Q3

REPORT INFORMATION
  Report Type: Spontaneous
  Country: US (occurrence: None)
  Receive Date: 20160811
  Receipt Date: 20160811
  Transmission Date: 20161109
  Serious: Yes (Other)
  Sender: FDA-Public Use
  Company Number: None

PATIENT
  Age: 48 Year
  Sex: Female
  Weight: 50.8 kg

DRUGS (4)
  1. MULTIVITAMINS [Concomitant]
     Active Substance: VITAMINS
  2. PROBIOTICS [Concomitant]
     Active Substance: PROBIOTICS NOS
  3. IRON SUPPLEMENTS [Concomitant]
     Active Substance: IRON
  4. CLINDAMYCIN (DID NOT KEEP ORIGINAL BOTTLE) 150MG CAPSULES ACTAVIS [Suspect]
     Active Substance: CLINDAMYCIN PHOSPHATE
     Indication: TOOTH INFECTION
     Route: 048
     Dates: start: 20160628, end: 20160731

REACTIONS (5)
  - Lethargy [None]
  - Pain [None]
  - Clostridium test positive [None]
  - Mucous stools [None]
  - Haematochezia [None]

NARRATIVE: CASE EVENT DATE: 20160714
